FAERS Safety Report 11360240 (Version 1)
Quarter: 2015Q3

REPORT INFORMATION
  Report Type: Report from Study
  Country: US (occurrence: US)
  Receive Date: 20150810
  Receipt Date: 20150810
  Transmission Date: 20151125
  Serious: No
  Sender: FDA-Public Use
  Company Number: PHEH2014US014662

PATIENT
  Age: 58 Year
  Sex: Female

DRUGS (4)
  1. EXTAVIA [Suspect]
     Active Substance: INTERFERON BETA-1B
     Indication: MULTIPLE SCLEROSIS
     Dosage: 0.062 MG, QOD (0.25 ML) WEEK 1 TO 2
     Route: 058
     Dates: start: 20140630
  2. EXTAVIA [Suspect]
     Active Substance: INTERFERON BETA-1B
     Dosage: 0.125 MG, QOD(0.5 ML) WEEK 3 TO 4
     Route: 058
     Dates: start: 20140707
  3. EXTAVIA [Suspect]
     Active Substance: INTERFERON BETA-1B
     Dosage: 0.1875 MG, QOD(0.75 ML) WEEK 5 TO 6
     Route: 058
  4. EXTAVIA [Suspect]
     Active Substance: INTERFERON BETA-1B
     Dosage: 0.25 MG, QOD (1 ML), WEEK 7 PLUS
     Route: 058

REACTIONS (7)
  - Impaired healing [Recovering/Resolving]
  - Fatigue [Not Recovered/Not Resolved]
  - Application site erythema [Unknown]
  - Application site bruise [Recovering/Resolving]
  - Chills [Unknown]
  - Insomnia [Recovering/Resolving]
  - Application site pain [Unknown]

NARRATIVE: CASE EVENT DATE: 20140715
